FAERS Safety Report 23905629 (Version 2)
Quarter: 2024Q2

REPORT INFORMATION
  Report Type: Spontaneous
  Country: IN (occurrence: IN)
  Receive Date: 20240527
  Receipt Date: 20240528
  Transmission Date: 20240715
  Serious: Yes (Other)
  Sender: FDA-Public Use
  Company Number: IN-PFIZER INC-PV202400063355

PATIENT
  Age: 47 Year
  Sex: Female

DRUGS (1)
  1. PALBOCICLIB [Suspect]
     Active Substance: PALBOCICLIB
     Dosage: 125 MG, 1X/DAY
     Route: 048
     Dates: start: 20220625

REACTIONS (4)
  - Lymphangitis [Unknown]
  - Wound [Unknown]
  - Infection [Unknown]
  - Neutrophil count decreased [Unknown]
